FAERS Safety Report 20146650 (Version 1)
Quarter: 2021Q4

REPORT INFORMATION
  Report Type: Spontaneous
  Country: ES (occurrence: ES)
  Receive Date: 20211203
  Receipt Date: 20211203
  Transmission Date: 20220303
  Serious: Yes (Other)
  Sender: FDA-Public Use
  Company Number: ES-NOVARTISPH-NVSC2021ES240704

PATIENT
  Sex: Female

DRUGS (5)
  1. AZARGA [Suspect]
     Active Substance: BRINZOLAMIDE\TIMOLOL MALEATE
     Indication: Product used for unknown indication
     Dosage: UNK
     Route: 047
  2. AZARGA [Suspect]
     Active Substance: BRINZOLAMIDE\TIMOLOL MALEATE
     Dosage: 2 DRP, QD (2 GTT, QHS)
     Route: 047
     Dates: start: 2013
  3. LUMIGAN [Suspect]
     Active Substance: BIMATOPROST
     Indication: Glaucoma
     Dosage: 2 DRP, QD (2 GTT, QAM) (STRENGTH 0.1 MG/ML)
     Route: 065
     Dates: start: 2013
  4. LUMIGAN [Suspect]
     Active Substance: BIMATOPROST
     Dosage: 2 DRP, QD (2 GTT, QAM)
     Route: 065
     Dates: start: 202110
  5. LUMIGAN [Suspect]
     Active Substance: BIMATOPROST
     Dosage: UNK
     Route: 065

REACTIONS (4)
  - Syncope [Recovered/Resolved]
  - Fall [Recovered/Resolved]
  - Inappropriate schedule of product administration [Unknown]
  - Epistaxis [Recovered/Resolved]
